FAERS Safety Report 4659230-6 (Version None)
Quarter: 2005Q2

REPORT INFORMATION
  Report Type: 
  Country: None (occurrence: None)
  Receive Date: 20050511
  Receipt Date: 20050322
  Transmission Date: 20051028
  Serious: Yes (Other)
  Sender: FDA-Public Use
  Company Number: 2005SE01750

PATIENT
  Age: 19750 Day
  Sex: Female

DRUGS (3)
  1. ARIMIDEX [Suspect]
     Indication: BREAST CANCER
     Route: 048
     Dates: start: 20041011
  2. DELIX [Concomitant]
     Indication: HYPERTENSION
     Route: 048
     Dates: start: 19870101
  3. DIDERAL [Concomitant]
     Indication: HYPERTENSION
     Route: 048
     Dates: start: 20030101

REACTIONS (1)
  - LIVER FUNCTION TEST ABNORMAL [None]
